FAERS Safety Report 20511725 (Version 2)
Quarter: 2022Q1

REPORT INFORMATION
  Report Type: Report from Study
  Country: US (occurrence: US)
  Receive Date: 20220224
  Receipt Date: 20220322
  Transmission Date: 20220423
  Serious: Yes (Hospitalization)
  Sender: FDA-Public Use
  Company Number: US-ADAMAS PHARMA, LLC-2022ADA00063

PATIENT
  Age: 77 Year
  Sex: Female

DRUGS (7)
  1. GOCOVRI [Suspect]
     Active Substance: AMANTADINE
     Indication: Dyskinesia
     Dosage: 274 MG, 1X/DAY AT BEDTIME
     Route: 048
     Dates: start: 20211123, end: 20211206
  2. RYTARY [Concomitant]
     Active Substance: CARBIDOPA\LEVODOPA
  3. MIRAPEX [Concomitant]
     Active Substance: PRAMIPEXOLE DIHYDROCHLORIDE
  4. RASAGILINE [Concomitant]
     Active Substance: RASAGILINE
  5. UNSPECIFIED INGREDIENT [Concomitant]
     Active Substance: UNSPECIFIED INGREDIENT
  6. UNSPECIFIED INGREDIENT [Concomitant]
     Active Substance: UNSPECIFIED INGREDIENT
  7. UNSPECIFIED INGREDIENT [Concomitant]
     Active Substance: UNSPECIFIED INGREDIENT

REACTIONS (13)
  - Urosepsis [Recovered/Resolved]
  - Hip arthroplasty [Recovering/Resolving]
  - Hip fracture [Recovering/Resolving]
  - Dyskinesia [Recovered/Resolved]
  - Incoherent [Recovered/Resolved]
  - Dehydration [Recovered/Resolved]
  - Seizure [Unknown]
  - Fall [Recovering/Resolving]
  - Oesophagitis [Unknown]
  - Malnutrition [Recovered/Resolved]
  - Hypophagia [Recovered/Resolved]
  - Electrolyte depletion [Recovered/Resolved]
  - Asthenia [Recovered/Resolved]

NARRATIVE: CASE EVENT DATE: 20211206
